FAERS Safety Report 21116951 (Version 1)
Quarter: 2022Q3

REPORT INFORMATION
  Report Type: Report from Study
  Country: NL (occurrence: NL)
  Receive Date: 20220722
  Receipt Date: 20220722
  Transmission Date: 20221027
  Serious: Yes (Hospitalization, Other)
  Sender: FDA-Public Use
  Company Number: NL-SA-SAC20210925000457

PATIENT

DRUGS (3)
  1. MEROPENEM [Suspect]
     Active Substance: MEROPENEM
     Indication: Product used for unknown indication
     Dosage: THERAPY START DATE AND END DATE : ASKU
     Route: 065
  2. TOBRAMYCIN [Suspect]
     Active Substance: TOBRAMYCIN
     Indication: Product used for unknown indication
     Dosage: THERAPY START DATE AND END DATE : ASKU
     Route: 065
  3. ALGLUCOSIDASE ALFA [Suspect]
     Active Substance: ALGLUCOSIDASE ALFA
     Indication: Glycogen storage disease type II
     Dosage: UNK, THERAPY END DATE : ASKU
     Route: 065
     Dates: start: 20070330

REACTIONS (8)
  - Pneumonia [Not Recovered/Not Resolved]
  - Respiratory tract infection viral [Unknown]
  - Bronchial secretion retention [Not Recovered/Not Resolved]
  - Respiratory tract infection [Recovered/Resolved]
  - Pyrexia [Not Recovered/Not Resolved]
  - Respiratory tract infection bacterial [Unknown]
  - Bronchial secretion retention [Not Recovered/Not Resolved]
  - Erythema [Not Recovered/Not Resolved]

NARRATIVE: CASE EVENT DATE: 20210916
